FAERS Safety Report 19867686 (Version 2)
Quarter: 2021Q3

REPORT INFORMATION
  Report Type: Report from Study
  Country: None (occurrence: ES)
  Receive Date: 20210922
  Receipt Date: 20210924
  Transmission Date: 20211014
  Serious: No
  Sender: FDA-Public Use
  Company Number: ES-ABBVIE-19K-144-2972695-00

PATIENT
  Age: 77 Year
  Sex: Male
  Weight: 77 kg

DRUGS (6)
  1. DUODOPA [Suspect]
     Active Substance: CARBIDOPA\LEVODOPA
     Route: 050
     Dates: start: 201910, end: 201910
  2. DUODOPA [Suspect]
     Active Substance: CARBIDOPA\LEVODOPA
     Dosage: INCREASE IN CONTINUOUS DOSE BY 3.2ML/H?INCREASE IN MORNING DOSE BY 4ML
     Route: 050
     Dates: start: 20191031, end: 2019
  3. DUODOPA [Suspect]
     Active Substance: CARBIDOPA\LEVODOPA
     Route: 050
     Dates: start: 20191028, end: 20191029
  4. DUODOPA [Suspect]
     Active Substance: CARBIDOPA\LEVODOPA
     Indication: PARKINSON^S DISEASE
     Route: 050
     Dates: start: 20191011, end: 201910
  5. DUODOPA [Suspect]
     Active Substance: CARBIDOPA\LEVODOPA
     Dosage: CHANGED THE MORNING DOSE AND THE CONTINUOUS DOSE
     Route: 050
     Dates: start: 2019
  6. DUODOPA [Suspect]
     Active Substance: CARBIDOPA\LEVODOPA
     Dosage: CONTINUOUS DOSE INCREASED TO 3ML/H
     Route: 050
     Dates: start: 20191029, end: 20191031

REACTIONS (6)
  - On and off phenomenon [Recovered/Resolved]
  - On and off phenomenon [Recovered/Resolved]
  - Hypokinesia [Unknown]
  - Device dislocation [Unknown]
  - Drug ineffective [Recovered/Resolved]
  - Parkinson^s disease [Unknown]

NARRATIVE: CASE EVENT DATE: 201910
